FAERS Safety Report 9901611 (Version 2)
Quarter: 2014Q1

REPORT INFORMATION
  Report Type: Spontaneous
  Country: US (occurrence: US)
  Receive Date: 20140217
  Receipt Date: 20140217
  Transmission Date: 20141002
  Serious: No
  Sender: FDA-Public Use
  Company Number: US-GILEAD-2011-0047627

PATIENT
  Sex: Female

DRUGS (4)
  1. LETAIRIS [Suspect]
     Indication: PULMONARY HYPERTENSION
     Dosage: 10 MG, UNK
     Route: 048
     Dates: start: 20110927
  2. LETAIRIS [Suspect]
     Indication: CORONARY ARTERY DISEASE
  3. ADCIRCA [Concomitant]
  4. TYVASO [Concomitant]

REACTIONS (1)
  - Cough [Unknown]
